FAERS Safety Report 4705671-8 (Version None)
Quarter: 2005Q2

REPORT INFORMATION
  Report Type: 
  Country: None (occurrence: None)
  Receive Date: 20050629
  Receipt Date: 20050615
  Transmission Date: 20051028
  Serious: Yes (Other)
  Sender: FDA-Public Use
  Company Number: GXKR2005JP01240

PATIENT
  Age: 46 Year
  Sex: Female

DRUGS (5)
  1. RIMACTANE [Suspect]
     Indication: TUBERCULOUS PLEURISY
     Dosage: ORAL
     Route: 048
     Dates: start: 20040301, end: 20040601
  2. ISONIAZID [Suspect]
     Indication: TUBERCULOUS PLEURISY
     Dates: start: 20040301
  3. PYRAZINAMIDE [Suspect]
     Indication: TUBERCULOUS PLEURISY
     Dates: start: 20040301
  4. ESANBUTOL (ETHAMBUTOL) [Suspect]
     Indication: TUBERCULOUS PLEURISY
     Dates: start: 20040301
  5. PREDNISOLONE [Concomitant]

REACTIONS (2)
  - NEPHROTIC SYNDROME [None]
  - RENAL FAILURE ACUTE [None]
